FAERS Safety Report 13091710 (Version 1)
Quarter: 2017Q1

REPORT INFORMATION
  Report Type: Spontaneous
  Country: HR (occurrence: HR)
  Receive Date: 20170106
  Receipt Date: 20170106
  Transmission Date: 20170428
  Serious: Yes (Life-Threatening)
  Sender: FDA-Public Use
  Company Number: PHHY2016HR180007

PATIENT
  Age: 46 Year
  Sex: Male

DRUGS (2)
  1. AZITROMICIN SANDOZ [Suspect]
     Active Substance: AZITHROMYCIN
     Indication: PHARYNGITIS
     Dosage: 500 MG, UNK
     Route: 048
     Dates: start: 20160303, end: 20160303
  2. VELAFAX [Concomitant]
     Active Substance: VENLAFAXINE HYDROCHLORIDE
     Indication: SOMATIC SYMPTOM DISORDER
     Dosage: 75 MG, QD
     Route: 048
     Dates: start: 20130502

REACTIONS (3)
  - Dyspnoea [Recovered/Resolved]
  - Loss of consciousness [Recovered/Resolved]
  - Palatal oedema [Recovered/Resolved]

NARRATIVE: CASE EVENT DATE: 20160304
